FAERS Safety Report 12990541 (Version 1)
Quarter: 2016Q4

REPORT INFORMATION
  Report Type: Spontaneous
  Country: US (occurrence: US)
  Receive Date: 20161130
  Receipt Date: 20161130
  Transmission Date: 20170207
  Serious: Yes (Other)
  Sender: FDA-Public Use
  Company Number: None

PATIENT
  Age: 61 Year
  Sex: Female
  Weight: 60.75 kg

DRUGS (1)
  1. POTASSIUM CHLORIDE POWDER [Suspect]
     Active Substance: POTASSIUM CHLORIDE
     Indication: BLOOD POTASSIUM DECREASED
     Route: 048
     Dates: start: 20161129, end: 20161129

REACTIONS (4)
  - Vomiting [None]
  - Hypertension [None]
  - Documented hypersensitivity to administered product [None]
  - Headache [None]

NARRATIVE: CASE EVENT DATE: 20161129
